FAERS Safety Report 5517054-1 (Version None)
Quarter: 2007Q4

REPORT INFORMATION
  Report Type: 
  Country: None (occurrence: None)
  Receive Date: 20071114
  Receipt Date: 20070724
  Transmission Date: 20080405
  Serious: No
  Sender: FDA-Public Use
  Company Number: A0665746A

PATIENT
  Age: 62 Year
  Sex: Female

DRUGS (1)
  1. COMMIT [Suspect]
     Dates: start: 20070714, end: 20070715

REACTIONS (2)
  - RESPIRATORY DISORDER [None]
  - THROAT TIGHTNESS [None]
